FAERS Safety Report 23290120 (Version 1)
Quarter: 2023Q4

REPORT INFORMATION
  Report Type: Report from Study
  Country: DE (occurrence: DE)
  Receive Date: 20231213
  Receipt Date: 20231213
  Transmission Date: 20240109
  Serious: Yes (Hospitalization)
  Sender: FDA-Public Use
  Company Number: DE-ABBVIE-5528368

PATIENT
  Age: 64 Year
  Sex: Female

DRUGS (15)
  1. SKYRIZI [Suspect]
     Active Substance: RISANKIZUMAB-RZAA
     Indication: Psoriasis
     Route: 058
     Dates: start: 20200922, end: 20201028
  2. SKYRIZI [Suspect]
     Active Substance: RISANKIZUMAB-RZAA
     Route: 058
     Dates: start: 20201028
  3. CARBIDOPA\LEVODOPA [Concomitant]
     Active Substance: CARBIDOPA\LEVODOPA
     Indication: Restless legs syndrome
     Dosage: FREQUENCY TEXT: 0.5-0.5-0.5-0.5 EVERY DAY
     Dates: start: 20050101
  4. METFORMIN [Concomitant]
     Active Substance: METFORMIN HYDROCHLORIDE
     Indication: Type 2 diabetes mellitus
     Dates: start: 20200301
  5. ALLOBETA [Concomitant]
     Indication: Gout
     Dosage: FREQUENCY TEXT: 0-0-0.5 EVERY DAY
     Dates: start: 20100101
  6. DAPAGLIFLOZIN [Concomitant]
     Active Substance: DAPAGLIFLOZIN
     Indication: Type 2 diabetes mellitus
     Dates: start: 20210601
  7. OMEPRAZOLE [Concomitant]
     Active Substance: OMEPRAZOLE
     Indication: Gastrointestinal disorder prophylaxis
     Dates: start: 20100101
  8. ROPINIROLE [Concomitant]
     Active Substance: ROPINIROLE
     Indication: Restless legs syndrome
     Dates: start: 20170101
  9. CITALOPRAM [Concomitant]
     Active Substance: CITALOPRAM HYDROBROMIDE
     Indication: Depression
     Dosage: FREQUENCY TEXT: 0.5-0-0 EVERY DAY
     Dates: start: 20170101
  10. ASPIRIN [Concomitant]
     Active Substance: ASPIRIN
     Indication: Anticoagulant therapy
     Dates: start: 20200501
  11. FUROSEMIDE [Concomitant]
     Active Substance: FUROSEMIDE
     Indication: Drainage
     Dates: start: 20180101
  12. Fusicutan [Concomitant]
     Indication: Follicular disorder
     Dosage: TIME INTERVAL: 0.33333333 DAYS: 20 MG PRO 1 G CREAM
     Dates: start: 20211221
  13. FOSTER [Concomitant]
     Active Substance: BECLOMETHASONE\FORMOTEROL
     Indication: Bronchitis chronic
     Dosage: ONGOING
     Dates: start: 20100101
  14. Moderna vaccination [Concomitant]
     Indication: COVID-19 immunisation
     Dates: start: 20211213, end: 20211213
  15. ATACAND [Concomitant]
     Active Substance: CANDESARTAN CILEXETIL
     Indication: Hypertension
     Dates: start: 20100101

REACTIONS (1)
  - Open reduction of fracture [Recovered/Resolved with Sequelae]

NARRATIVE: CASE EVENT DATE: 20231019
